FAERS Safety Report 6211928-4 (Version None)
Quarter: 2009Q2

REPORT INFORMATION
  Report Type: 
  Country: None (occurrence: None)
  Receive Date: 20090529
  Receipt Date: 20090514
  Transmission Date: 20091009
  Serious: Yes (Other)
  Sender: FDA-Public Use
  Company Number: 2009S1008585

PATIENT
  Age: 72 Year
  Sex: Female
  Weight: 72.5755 kg

DRUGS (18)
  1. FENTANYL TRANSDERMAL SYSTEM [Suspect]
     Indication: BACK PAIN
     Dosage: 25 UG;EVERY HOUR;TRANSDERMAL
     Route: 062
     Dates: start: 20090509, end: 20090511
  2. FENTANYL TRANSDERMAL SYSTEM [Suspect]
     Indication: PAIN IN EXTREMITY
     Dosage: 25 UG;EVERY HOUR;TRANSDERMAL
     Route: 062
     Dates: start: 20090509, end: 20090511
  3. FENTANYL TRANSDERMAL SYSTEM [Suspect]
     Indication: SCIATICA
     Dosage: 25 UG;EVERY HOUR;TRANSDERMAL
     Route: 062
     Dates: start: 20090509, end: 20090511
  4. PREVACID [Concomitant]
  5. THEOPHYLLINE [Concomitant]
  6. ATENOLOL [Concomitant]
  7. SPIRONOLACTONE [Concomitant]
  8. CARDIZEM [Concomitant]
  9. POLYETHYLENE GLYCOL [Concomitant]
  10. ASPIRIN [Concomitant]
  11. PULMICORT-100 [Concomitant]
  12. ALBUTEROL [Concomitant]
  13. XOPENEX [Concomitant]
  14. PREDNISONE [Concomitant]
  15. NITROGLYCERIN [Concomitant]
  16. TALWIN [Concomitant]
  17. CALCIUM WITH VITAMIN D [Concomitant]
  18. FISH OIL [Concomitant]

REACTIONS (8)
  - ASTHENIA [None]
  - BLOOD PRESSURE INCREASED [None]
  - CHEST PAIN [None]
  - DYSPNOEA [None]
  - HEART RATE INCREASED [None]
  - HYPERHIDROSIS [None]
  - NAUSEA [None]
  - PRURITUS GENERALISED [None]
